FAERS Safety Report 4968496-4 (Version None)
Quarter: 2006Q2

REPORT INFORMATION
  Report Type: 
  Country: None (occurrence: None)
  Receive Date: 20060410
  Receipt Date: 20041101
  Transmission Date: 20061013
  Serious: Yes (Life-Threatening, Hospitalization)
  Sender: FDA-Public Use
  Company Number: US-MERCK-0411USA00216

PATIENT
  Age: 52 Year
  Sex: Male

DRUGS (2)
  1. VIOXX [Suspect]
     Indication: INFLAMMATION
     Route: 048
     Dates: start: 20010102, end: 20040421
  2. NEXIUM [Concomitant]
     Route: 065

REACTIONS (2)
  - ANGINA UNSTABLE [None]
  - CORONARY ARTERY OCCLUSION [None]
